FAERS Safety Report 10046049 (Version 1)
Quarter: 2014Q1

REPORT INFORMATION
  Report Type: Spontaneous
  Country: CA (occurrence: CA)
  Receive Date: 20140331
  Receipt Date: 20140331
  Transmission Date: 20141002
  Serious: Yes (Death, Other)
  Sender: FDA-Public Use
  Company Number: CA-ROCHE-1373171

PATIENT
  Age: 86 Year
  Sex: Female

DRUGS (2)
  1. XELODA [Suspect]
     Indication: BREAST CANCER METASTATIC
     Dosage: UNKNOWN DOSE
     Route: 048
     Dates: start: 201012, end: 201101
  2. HERCEPTIN [Suspect]
     Indication: BREAST CANCER
     Dosage: UNKNOWN DOSE
     Route: 042
     Dates: start: 2008, end: 2009

REACTIONS (3)
  - Disease progression [Fatal]
  - Dry skin [Recovered/Resolved]
  - Skin exfoliation [Recovered/Resolved]
